FAERS Safety Report 8285958-5 (Version None)
Quarter: 2012Q2

REPORT INFORMATION
  Report Type: 
  Country: None (occurrence: None)
  Receive Date: 20120415
  Receipt Date: 20120403
  Transmission Date: 20120825
  Serious: Yes (Death, Hospitalization)
  Sender: FDA-Public Use
  Company Number: DE-BRISTOL-MYERS SQUIBB COMPANY-16501629

PATIENT
  Age: 55 Year
  Sex: Male
  Weight: 62 kg

DRUGS (10)
  1. SYMBICORT [Concomitant]
     Dates: start: 20120213
  2. PEMETREXED DISODIUM [Suspect]
     Indication: NON-SMALL CELL LUNG CANCER
     Route: 042
     Dates: start: 20120316
  3. CISPLATIN [Suspect]
     Indication: NON-SMALL CELL LUNG CANCER
  4. FOLIC ACID [Concomitant]
     Dates: start: 20120307
  5. PREDNISOLONE [Concomitant]
     Dates: start: 20120306, end: 20120315
  6. VITAMIN B-12 [Concomitant]
     Dates: start: 20120307, end: 20120307
  7. SPIRIVA [Concomitant]
     Dates: start: 20120213
  8. DEXAMETHASONE [Concomitant]
     Dates: start: 20120315, end: 20120318
  9. HEPARIN SODIUM [Suspect]
     Dosage: 1 DF=5000IU (SINGLE DOSE)
     Dates: start: 20120324
  10. ACETYLSALICYLIC ACID SRT [Suspect]
     Dosage: 1 DF=500 (UNITS NOT PROVIDED) SINGLE DOSE ON 24MAR2012 26MAR2012:100(UNITS NOT PROVIDED)
     Route: 042
     Dates: start: 20120324

REACTIONS (3)
  - HYPERTENSION [None]
  - UPPER GASTROINTESTINAL HAEMORRHAGE [None]
  - PERICARDITIS [None]
